FAERS Safety Report 9801938 (Version 2)
Quarter: 2014Q1

REPORT INFORMATION
  Report Type: Report from Study
  Country: BR (occurrence: BR)
  Receive Date: 20140107
  Receipt Date: 20140313
  Transmission Date: 20141002
  Serious: Yes (Other)
  Sender: FDA-Public Use
  Company Number: PHHY2014BR001247

PATIENT
  Sex: Female
  Weight: 60 kg

DRUGS (1)
  1. DIOVAN TRIPLE [Suspect]
     Indication: HYPERTENSION
     Dosage: 2 DF, (160/0.5/12.5 MG) AT 10 AM
     Route: 048
     Dates: start: 2012, end: 201310

REACTIONS (6)
  - Diverticulum [Recovered/Resolved]
  - Intestinal polyp [Recovered/Resolved]
  - Inflammation [Recovered/Resolved]
  - Constipation [Recovered/Resolved]
  - Weight decreased [Recovered/Resolved]
  - Local swelling [Recovered/Resolved]
